FAERS Safety Report 7435992-X (Version None)
Quarter: 2011Q2

REPORT INFORMATION
  Report Type: 
  Country: None (occurrence: None)
  Receive Date: 20110425
  Receipt Date: 20110420
  Transmission Date: 20111010
  Serious: Yes (Other)
  Sender: FDA-Public Use
  Company Number: US-PFIZER INC-2011086772

PATIENT
  Sex: Female

DRUGS (6)
  1. PREMARIN [Suspect]
     Dosage: UNK
  2. VITAMIN C [Suspect]
     Dosage: UNK
  3. VITAMIN B3 (NICOTINIC ACID AMIDE) [Suspect]
     Dosage: UNK
  4. PROVERA [Suspect]
     Dosage: UNK
  5. CALTRATE 600 + VITAMIN D [Suspect]
     Dosage: UNK
     Route: 048
  6. CALCIUM CARBONATE [Suspect]
     Dosage: UNK

REACTIONS (2)
  - DIARRHOEA [None]
  - OSTEOPOROSIS [None]
